FAERS Safety Report 6084842-5 (Version None)
Quarter: 2009Q1

REPORT INFORMATION
  Report Type: 
  Country: None (occurrence: None)
  Receive Date: 20090218
  Receipt Date: 20090205
  Transmission Date: 20090719
  Serious: Yes (Hospitalization)
  Sender: FDA-Public Use
  Company Number: JPI-P-006050

PATIENT
  Age: 49 Year
  Sex: Male

DRUGS (4)
  1. XYREM [Suspect]
     Indication: HYPERSOMNIA
     Dosage: 9 GM (4.5 GM, 2 IN 1 D) ,ORAL; 12 GM (6 GM, 2 IN 1 D) ,ORAL
     Route: 048
     Dates: start: 20081217, end: 20090105
  2. XYREM [Suspect]
     Indication: HYPERSOMNIA
     Dosage: 9 GM (4.5 GM, 2 IN 1 D) ,ORAL; 12 GM (6 GM, 2 IN 1 D) ,ORAL
     Route: 048
     Dates: start: 20050524
  3. XYREM [Suspect]
     Indication: HYPERSOMNIA
     Dosage: 9 GM (4.5 GM, 2 IN 1 D) ,ORAL; 12 GM (6 GM, 2 IN 1 D) ,ORAL
     Route: 048
     Dates: start: 20090116
  4. UNSPECIFIED MEDICATIONS [Concomitant]

REACTIONS (4)
  - EMPYEMA [None]
  - LOSS OF CONSCIOUSNESS [None]
  - PNEUMONIA [None]
  - SCAR [None]
